FAERS Safety Report 20410471 (Version 7)
Quarter: 2022Q2

REPORT INFORMATION
  Report Type: Spontaneous
  Country: US (occurrence: US)
  Receive Date: 20220201
  Receipt Date: 20220614
  Transmission Date: 20220720
  Serious: No
  Sender: FDA-Public Use
  Company Number: US-PFIZER INC-202200016966

PATIENT
  Age: 58 Year
  Sex: Female

DRUGS (1)
  1. IBRANCE [Suspect]
     Active Substance: PALBOCICLIB
     Indication: Breast cancer female
     Dosage: 75 MG
     Dates: start: 20210918

REACTIONS (10)
  - Alopecia [Unknown]
  - Nerve injury [Unknown]
  - Fatigue [Unknown]
  - Hot flush [Unknown]
  - Hyperhidrosis [Unknown]
  - Vomiting [Unknown]
  - Hypoaesthesia [Unknown]
  - Paraesthesia [Unknown]
  - Pain [Unknown]
  - Burning sensation [Unknown]
